FAERS Safety Report 23895858 (Version 1)
Quarter: 2024Q2

REPORT INFORMATION
  Report Type: Spontaneous
  Country: US (occurrence: US)
  Receive Date: 20240524
  Receipt Date: 20240524
  Transmission Date: 20240716
  Serious: Yes (Other)
  Sender: FDA-Public Use
  Company Number: US-BRISTOL-MYERS SQUIBB COMPANY-2024-077772

PATIENT
  Age: 74 Year
  Sex: Female

DRUGS (1)
  1. LENALIDOMIDE [Suspect]
     Active Substance: LENALIDOMIDE
     Indication: Plasma cell myeloma
     Dosage: FREQUENCY: TAKE 1 CAPSULE (5 MG) BY MOUTH EVERY OTHER DAY ON DAYS 1-21, THEN 7 DAYS OFF
     Route: 048
     Dates: end: 2024

REACTIONS (2)
  - Cataract [Not Recovered/Not Resolved]
  - Tooth disorder [Not Recovered/Not Resolved]
